FAERS Safety Report 22642319 (Version 1)
Quarter: 2023Q2

REPORT INFORMATION
  Report Type: Spontaneous
  Country: CN (occurrence: None)
  Receive Date: 20230626
  Receipt Date: 20230626
  Transmission Date: 20230722
  Serious: Yes (Other)
  Sender: FDA-Public Use
  Company Number: 2023A144703

PATIENT
  Age: 20093 Day
  Sex: Male
  Weight: 71.5 kg

DRUGS (1)
  1. DAPAGLIFLOZIN [Suspect]
     Active Substance: DAPAGLIFLOZIN
     Indication: Diabetes mellitus
     Route: 048
     Dates: start: 20230614

REACTIONS (1)
  - Blood ketone body increased [Recovered/Resolved]

NARRATIVE: CASE EVENT DATE: 20230615
